APPROVED DRUG PRODUCT: TRIAMCINOLONE ACETONIDE
Active Ingredient: TRIAMCINOLONE ACETONIDE
Strength: 0.5%
Dosage Form/Route: OINTMENT;TOPICAL
Application: A089913 | Product #001
Applicant: ALPHARMA US PHARMACEUTICALS DIVISION
Approved: Dec 23, 1988 | RLD: No | RS: No | Type: DISCN